FAERS Safety Report 25651555 (Version 1)
Quarter: 2025Q3

REPORT INFORMATION
  Report Type: Spontaneous
  Country: CH (occurrence: CH)
  Receive Date: 20250806
  Receipt Date: 20250806
  Transmission Date: 20251020
  Serious: Yes (Life-Threatening, Hospitalization)
  Sender: MYLAN
  Company Number: CH-MYLANLABS-2025M1066628

PATIENT
  Age: 51 Year
  Sex: Female

DRUGS (2)
  1. EPINEPHRINE [Suspect]
     Active Substance: EPINEPHRINE
     Indication: Angioedema
  2. CLEMASTINE [Suspect]
     Active Substance: CLEMASTINE
     Indication: Angioedema

REACTIONS (1)
  - Drug ineffective [Unknown]
